FAERS Safety Report 23975844 (Version 4)
Quarter: 2024Q4

REPORT INFORMATION
  Report Type: Spontaneous
  Country: US (occurrence: US)
  Receive Date: 20240614
  Receipt Date: 20241001
  Transmission Date: 20250115
  Serious: Yes (Other)
  Sender: SANOFI AVENTIS
  Company Number: US-SA-SAC20240612000027

PATIENT
  Age: 68 Year
  Sex: Male

DRUGS (18)
  1. KEVZARA [Suspect]
     Active Substance: SARILUMAB
     Indication: Rheumatoid arthritis
     Dosage: 200 MG, QOW
     Route: 058
  2. ACYCLOVIR [Concomitant]
     Active Substance: ACYCLOVIR
     Dosage: UNK
  3. ALFUZOSIN [Concomitant]
     Active Substance: ALFUZOSIN
     Dosage: UNK
  4. ATORVASTATIN [Concomitant]
     Active Substance: ATORVASTATIN
     Dosage: UNK
  5. CARVEDILOL [Concomitant]
     Active Substance: CARVEDILOL
     Dosage: UNK
  6. DULOXETINE [Concomitant]
     Active Substance: DULOXETINE
     Dosage: UNK
  7. FLUTICASONE [Concomitant]
     Active Substance: FLUTICASONE
     Dosage: UNK
  8. FOLIC ACID [Concomitant]
     Active Substance: FOLIC ACID
     Dosage: UNK
  9. IBUPROFEN [Concomitant]
     Active Substance: IBUPROFEN
     Dosage: UNK
  10. METHOTREXATE [Concomitant]
     Active Substance: METHOTREXATE
  11. MORPHINE SULFATE [Concomitant]
     Active Substance: MORPHINE SULFATE
     Dosage: UNK
  12. PREDNISONE [Concomitant]
     Active Substance: PREDNISONE
     Dosage: UNK
  13. VITAMIN C [Concomitant]
     Active Substance: ASCORBIC ACID
     Dosage: UNK
  14. VITAMIN D NOS [Concomitant]
     Active Substance: CHOLECALCIFEROL\ERGOCALCIFEROL
     Dosage: UNK
  15. DIGESTIVE [Concomitant]
     Dosage: UNK
  16. METHOCARBAMOL [Concomitant]
     Active Substance: METHOCARBAMOL
     Dosage: UNK
  17. FLUTICASONE PROPIONATE [Concomitant]
     Active Substance: FLUTICASONE PROPIONATE
  18. ZINC [Concomitant]
     Active Substance: ZINC

REACTIONS (11)
  - Rheumatoid arthritis [Not Recovered/Not Resolved]
  - Spinal operation [Unknown]
  - Pain [Not Recovered/Not Resolved]
  - Illness [Unknown]
  - Gait inability [Not Recovered/Not Resolved]
  - Mobility decreased [Not Recovered/Not Resolved]
  - Nasal congestion [Unknown]
  - Loss of personal independence in daily activities [Unknown]
  - Dry skin [Unknown]
  - White blood cell count decreased [Unknown]
  - Platelet count decreased [Not Recovered/Not Resolved]
